FAERS Safety Report 17021960 (Version 1)
Quarter: 2019Q4

REPORT INFORMATION
  Report Type: Spontaneous
  Country: US (occurrence: US)
  Receive Date: 20191008
  Receipt Date: 20191008
  Transmission Date: 20200122
  Serious: No
  Sender: FDA-Public Use
  Company Number: None

PATIENT
  Age: 74 Year
  Sex: Male

DRUGS (1)
  1. FORTEO [Suspect]
     Active Substance: TERIPARATIDE
     Route: 058
     Dates: start: 201712

REACTIONS (6)
  - Haemoglobin decreased [None]
  - Mean cell volume increased [None]
  - Product dose omission [None]
  - Laboratory test abnormal [None]
  - Hepatic enzyme increased [None]
  - Platelet count decreased [None]

NARRATIVE: CASE EVENT DATE: 20191008
